FAERS Safety Report 24449208 (Version 1)
Quarter: 2024Q4

REPORT INFORMATION
  Report Type: Spontaneous
  Country: US (occurrence: US)
  Receive Date: 20241017
  Receipt Date: 20241017
  Transmission Date: 20250115
  Serious: Yes (Other)
  Sender: AMGEN
  Company Number: US-AMGEN-USASP2024202581

PATIENT
  Age: 85 Year

DRUGS (1)
  1. REPATHA [Suspect]
     Active Substance: EVOLOCUMAB
     Indication: Product used for unknown indication
     Dosage: 140 MILLIGRAM
     Route: 065
     Dates: start: 20240725

REACTIONS (5)
  - Macular degeneration [Unknown]
  - Neoplasm malignant [Unknown]
  - Impaired healing [Unknown]
  - Device difficult to use [Unknown]
  - Wound [Unknown]

NARRATIVE: CASE EVENT DATE: 20241011
